FAERS Safety Report 6510490-6 (Version None)
Quarter: 2009Q4

REPORT INFORMATION
  Report Type: 
  Country: None (occurrence: None)
  Receive Date: 20091222
  Receipt Date: 20091216
  Transmission Date: 20100525
  Serious: Yes (Death, Hospitalization)
  Sender: FDA-Public Use
  Company Number: US-AMGEN-US377612

PATIENT
  Sex: Female
  Weight: 43.4 kg

DRUGS (17)
  1. PANITUMUMAB [Suspect]
     Indication: COLORECTAL CANCER
     Route: 040
     Dates: start: 20091102, end: 20091116
  2. ATIVAN [Concomitant]
     Route: 065
     Dates: start: 20090112
  3. DOCUSATE [Concomitant]
     Route: 065
     Dates: start: 20090929
  4. SENNA [Concomitant]
     Route: 065
     Dates: start: 20090929
  5. ZOFRAN [Concomitant]
     Route: 065
     Dates: start: 20090504
  6. HYTRIN [Concomitant]
     Route: 047
     Dates: start: 20091124
  7. ATROPINE [Concomitant]
     Route: 047
     Dates: start: 20091201
  8. COMPAZINE [Concomitant]
     Route: 065
     Dates: start: 20091201
  9. HALDOL [Concomitant]
     Route: 065
     Dates: start: 20091202
  10. METHADONE HYDROCHLORIDE [Concomitant]
     Route: 065
     Dates: start: 20091201
  11. MORPHINE [Concomitant]
     Route: 065
     Dates: start: 20091201
  12. NEURONTIN [Concomitant]
     Route: 065
     Dates: start: 20091201
  13. KEFLEX [Concomitant]
     Route: 065
     Dates: start: 20091116
  14. MAALOX [Concomitant]
     Route: 065
     Dates: start: 20090519
  15. MAGNESIUM OXIDE [Concomitant]
     Route: 065
     Dates: start: 20091027
  16. MYCOSTATIN [Concomitant]
     Route: 065
     Dates: start: 20091106
  17. OXYBUTYNIN CHLORIDE [Concomitant]
     Route: 065
     Dates: start: 20091106

REACTIONS (4)
  - ABDOMINAL PAIN LOWER [None]
  - DISEASE PROGRESSION [None]
  - FAILURE TO THRIVE [None]
  - WEIGHT DECREASED [None]
